FAERS Safety Report 24780676 (Version 1)
Quarter: 2024Q4

REPORT INFORMATION
  Report Type: Spontaneous
  Country: IN (occurrence: IN)
  Receive Date: 20241227
  Receipt Date: 20241227
  Transmission Date: 20250115
  Serious: Yes (Death, Hospitalization)
  Sender: GE HEALTHCARE
  Company Number: IN-GE HEALTHCARE-2024CSU014590

PATIENT
  Age: 54 Year
  Sex: Female

DRUGS (1)
  1. VISIPAQUE [Suspect]
     Active Substance: IODIXANOL
     Indication: Coronary angioplasty
     Dosage: 120 ML, TOTAL
     Route: 013
     Dates: start: 20241212, end: 20241212

REACTIONS (5)
  - Full blood count abnormal [Fatal]
  - Circulatory collapse [Fatal]
  - Blood creatinine increased [Fatal]
  - Pyrexia [Fatal]
  - Chills [Fatal]

NARRATIVE: CASE EVENT DATE: 20241212
